FAERS Safety Report 7676767-6 (Version None)
Quarter: 2011Q3

REPORT INFORMATION
  Report Type: 
  Country: None (occurrence: None)
  Receive Date: 20110809
  Receipt Date: 20110809
  Transmission Date: 20111222
  Serious: Yes (Other)
  Sender: FDA-Public Use
  Company Number: None

PATIENT
  Age: 70 Year
  Sex: Female

DRUGS (2)
  1. COPEGUS [Suspect]
     Indication: HEPATITIS C
     Dosage: 180 MG COPEGASYS Q WEEK SUB Q
     Route: 058
     Dates: start: 20110505
  2. PEGASYS [Suspect]
     Indication: HEPATITIS C
     Dosage: 1000 COPEGUS QD POM
     Route: 048
     Dates: start: 20110505

REACTIONS (2)
  - DECREASED APPETITE [None]
  - WEIGHT DECREASED [None]
